FAERS Safety Report 17588740 (Version 1)
Quarter: 2020Q1

REPORT INFORMATION
  Report Type: Spontaneous
  Country: DE (occurrence: DE)
  Receive Date: 20200327
  Receipt Date: 20200327
  Transmission Date: 20200409
  Serious: Yes (Disabling)
  Sender: FDA-Public Use
  Company Number: DE-AUROBINDO-AUR-APL-2020-015322

PATIENT
  Sex: Female
  Weight: 66 kg

DRUGS (4)
  1. RAMILICH [Suspect]
     Active Substance: RAMIPRIL
     Indication: HEART RATE INCREASED
     Dosage: 2.5 MILLIGRAM, ONCE A DAY
     Route: 048
     Dates: start: 20200206
  2. AMLODIPINE [Suspect]
     Active Substance: AMLODIPINE BESYLATE
     Indication: HYPERTENSION
  3. RAMILICH [Suspect]
     Active Substance: RAMIPRIL
     Indication: HYPERTENSION
  4. AMLODIPINE [Suspect]
     Active Substance: AMLODIPINE BESYLATE
     Indication: HEART RATE INCREASED
     Dosage: 5 MILLIGRAM, ONCE A DAY
     Route: 065
     Dates: start: 20200206

REACTIONS (9)
  - Chest discomfort [Unknown]
  - Head discomfort [Unknown]
  - Palpitations [Unknown]
  - Peripheral swelling [Unknown]
  - Drug ineffective [Unknown]
  - Sleep disorder [Unknown]
  - Vision blurred [Unknown]
  - Pain in extremity [Unknown]
  - Varicose vein [Unknown]

NARRATIVE: CASE EVENT DATE: 20200212
